FAERS Safety Report 8320290-2 (Version None)
Quarter: 2012Q2

REPORT INFORMATION
  Report Type: 
  Country: None (occurrence: None)
  Receive Date: 20120426
  Receipt Date: 20120426
  Transmission Date: 20120825
  Serious: No
  Sender: FDA-Public Use
  Company Number: None

PATIENT
  Sex: Female
  Weight: 50.8029 kg

DRUGS (1)
  1. GABAPENTIN [Suspect]
     Indication: PAIN
     Dosage: 100 MG 1 AT NIGHT
     Dates: start: 20120312

REACTIONS (4)
  - TREMOR [None]
  - THROAT TIGHTNESS [None]
  - DRY MOUTH [None]
  - DYSPHAGIA [None]
